FAERS Safety Report 4508844-2 (Version None)
Quarter: 2004Q4

REPORT INFORMATION
  Report Type: 
  Country: None (occurrence: None)
  Receive Date: 20041122
  Receipt Date: 20041122
  Transmission Date: 20050328
  Serious: Yes (Hospitalization)
  Sender: FDA-Public Use
  Company Number: None

PATIENT
  Age: 69 Year
  Sex: Male
  Weight: 113.7 kg

DRUGS (27)
  1. GATIFLOXACIN [Suspect]
     Indication: INFECTION
     Dosage: 400 MG , QD ORAL
     Route: 048
  2. OMEPRAZOLE [Concomitant]
  3. HUMULIN R [Concomitant]
  4. INSULIN SYRINGE [Concomitant]
  5. ALCOHOL PREP PAD [Concomitant]
  6. NOVOLIN 70/30 [Concomitant]
  7. LISINOPRIL [Concomitant]
  8. COUMADIN [Concomitant]
  9. TRAVOPROST [Concomitant]
  10. MORPHINE SO4 [Concomitant]
  11. GUALIFENESIN (ALC-F/SF) [Concomitant]
  12. METOLAZONE [Concomitant]
  13. TRIAMCINOLONE ORAL INH [Concomitant]
  14. HYDROCODONE 7.5/ACETAMINOPHEN [Concomitant]
  15. PENTOXIFYLLINE [Concomitant]
  16. GLIPIZIDE [Concomitant]
  17. BRIMONIDINE TARTRATE [Concomitant]
  18. BRIMONIDINE TARTRATE [Concomitant]
  19. DILTIAZEM [Concomitant]
  20. FUROSEMIDE [Concomitant]
  21. DIGOXIN [Concomitant]
  22. LEVOFLOXACIN [Concomitant]
  23. ACETAMINOPHEN [Concomitant]
  24. DORZOLAMIDE HCL [Concomitant]
  25. PILOCARPINE HCL [Concomitant]
  26. NICOTINE [Concomitant]
  27. SENNOSIDES [Concomitant]

REACTIONS (1)
  - HYPERGLYCAEMIA [None]
